FAERS Safety Report 23326920 (Version 1)
Quarter: 2023Q4

REPORT INFORMATION
  Report Type: Spontaneous
  Country: US (occurrence: None)
  Receive Date: 20231220
  Receipt Date: 20231220
  Transmission Date: 20240110
  Serious: Yes (Hospitalization)
  Sender: FDA-Public Use
  Company Number: None

PATIENT
  Age: 38 Year
  Sex: Female
  Weight: 90 kg

DRUGS (1)
  1. MONISTAT 7 [Suspect]
     Active Substance: MICONAZOLE NITRATE

REACTIONS (1)
  - Malaise [None]

NARRATIVE: CASE EVENT DATE: 20211208
